FAERS Safety Report 9449985 (Version 1)
Quarter: 2013Q3

REPORT INFORMATION
  Report Type: Spontaneous
  Country: US (occurrence: US)
  Receive Date: 20130809
  Receipt Date: 20130809
  Transmission Date: 20140515
  Serious: No
  Sender: FDA-Public Use
  Company Number: US-PFIZER INC-2013230584

PATIENT
  Age: 50 Year
  Sex: Female

DRUGS (2)
  1. ADVIL CONGESTION RELIEF [Suspect]
     Indication: SINUS CONGESTION
     Dosage: UNK
  2. ADVIL CONGESTION RELIEF [Suspect]
     Indication: PAIN

REACTIONS (1)
  - Drug ineffective [Unknown]
